FAERS Safety Report 14328931 (Version 2)
Quarter: 2018Q4

REPORT INFORMATION
  Report Type: Spontaneous
  Country: US (occurrence: US)
  Receive Date: 20171227
  Receipt Date: 20181210
  Transmission Date: 20190204
  Serious: No
  Sender: FDA-Public Use
  Company Number: US-PFIZER INC-2017548739

PATIENT
  Age: 69 Year

DRUGS (5)
  1. CLONIDINE. [Suspect]
     Active Substance: CLONIDINE
     Dosage: UNK
  2. ALTACE [Suspect]
     Active Substance: RAMIPRIL
     Dosage: UNK
  3. CRESTOR [Suspect]
     Active Substance: ROSUVASTATIN CALCIUM
     Dosage: UNK
  4. LIPITOR [Suspect]
     Active Substance: ATORVASTATIN CALCIUM
     Dosage: UNK
  5. OXYBUTYNIN CHLORIDE. [Suspect]
     Active Substance: OXYBUTYNIN CHLORIDE
     Dosage: UNK

REACTIONS (1)
  - Drug hypersensitivity [Unknown]
